FAERS Safety Report 21220672 (Version 1)
Quarter: 2022Q3

REPORT INFORMATION
  Report Type: Spontaneous
  Country: US (occurrence: US)
  Receive Date: 20220817
  Receipt Date: 20220817
  Transmission Date: 20221026
  Serious: Yes (Other)
  Sender: FDA-Public Use
  Company Number: US-SA-SAC20220812000381

PATIENT
  Age: 54 Year
  Sex: Male

DRUGS (2)
  1. ZANTAC [Suspect]
     Active Substance: RANITIDINE HYDROCHLORIDE
     Indication: Gastrooesophageal reflux disease
     Dosage: 150 MG, QD
     Dates: start: 198501, end: 201901
  2. ZANTAC [Suspect]
     Active Substance: RANITIDINE HYDROCHLORIDE
     Indication: Dyspepsia

REACTIONS (6)
  - Colorectal cancer [Unknown]
  - Gastrointestinal carcinoma [Unknown]
  - Carcinoid tumour [Unknown]
  - Neuroendocrine carcinoma [Unknown]
  - Squamous cell carcinoma [Unknown]
  - Neuroendocrine tumour [Unknown]

NARRATIVE: CASE EVENT DATE: 20030101
